FAERS Safety Report 22615630 (Version 1)
Quarter: 2023Q2

REPORT INFORMATION
  Report Type: Spontaneous
  Country: US (occurrence: US)
  Receive Date: 20230619
  Receipt Date: 20230619
  Transmission Date: 20230721
  Serious: Yes (Other)
  Sender: FDA-Public Use
  Company Number: US-Calliditas-2023CAL00541

PATIENT

DRUGS (1)
  1. ALBUTEROL\BUDESONIDE [Suspect]
     Active Substance: ALBUTEROL\BUDESONIDE
     Indication: Asthma
     Dosage: 2 ACTUATIONS OF BUDESONIDE-ALBUTEROL 90/80 UG OR 90/40 UG.
     Route: 055

REACTIONS (1)
  - Asthma [Unknown]
